FAERS Safety Report 7562976-3 (Version None)
Quarter: 2011Q2

REPORT INFORMATION
  Report Type: 
  Country: None (occurrence: None)
  Receive Date: 20110615
  Receipt Date: 20110601
  Transmission Date: 20111010
  Serious: Yes (Hospitalization, Disabling, Other)
  Sender: FDA-Public Use
  Company Number: 2010MA001018

PATIENT
  Sex: Male

DRUGS (35)
  1. PERCOCET [Concomitant]
  2. NEURONTIN [Concomitant]
  3. OXYCONTIN [Concomitant]
  4. FIORINAL [Concomitant]
  5. DARVOCET [Concomitant]
  6. CLONIDINE [Concomitant]
  7. BENTYL [Concomitant]
  8. ELAVIL [Concomitant]
  9. HYDROCODONE [Concomitant]
  10. AMBIEN [Concomitant]
  11. ZANTAC [Concomitant]
  12. CELEXA [Concomitant]
  13. MOBIC [Concomitant]
  14. ZYPREXA [Concomitant]
  15. XANAX [Concomitant]
  16. DONNATAL [Concomitant]
  17. IMITREX [Concomitant]
  18. FIORICET [Concomitant]
  19. CARAFATE [Concomitant]
  20. HYDROCHLOROTHIAZIDE [Concomitant]
  21. BACLOFEN [Concomitant]
  22. LORCET-HD [Concomitant]
  23. ROXICODONE [Concomitant]
  24. PROPDXYPHENE [Concomitant]
  25. PRILOSEC [Concomitant]
  26. NEXIUM [Concomitant]
  27. ZOCOR [Concomitant]
  28. SIMVASTATIN [Concomitant]
  29. METOCLOPRAMIDE [Suspect]
     Dosage: 50 MG
     Dates: start: 20070101, end: 20090101
  30. TRAZODONE HCL [Concomitant]
  31. DIAZEPAM [Concomitant]
  32. GEMFIBROZIL [Concomitant]
  33. CATAFLAM [Concomitant]
  34. OMEGA [Concomitant]
  35. PREVPAC [Concomitant]

REACTIONS (40)
  - ACTIVITIES OF DAILY LIVING IMPAIRED [None]
  - EXCESSIVE EYE BLINKING [None]
  - POST-TRAUMATIC STRESS DISORDER [None]
  - ANXIETY [None]
  - ECONOMIC PROBLEM [None]
  - GRIMACING [None]
  - FAMILY STRESS [None]
  - TREMOR [None]
  - MUSCLE SPASMS [None]
  - DYSKINESIA [None]
  - NERVOUS SYSTEM DISORDER [None]
  - PAIN [None]
  - JOINT DISLOCATION [None]
  - PROCTALGIA [None]
  - BALANCE DISORDER [None]
  - TARDIVE DYSKINESIA [None]
  - AGITATION [None]
  - RECTAL HAEMORRHAGE [None]
  - DEPRESSION [None]
  - LACRIMATION INCREASED [None]
  - EXTRAPYRAMIDAL DISORDER [None]
  - DEFORMITY [None]
  - QUALITY OF LIFE DECREASED [None]
  - INCORRECT DRUG ADMINISTRATION DURATION [None]
  - BRUXISM [None]
  - SUBSTANCE ABUSE [None]
  - PERSONALITY CHANGE [None]
  - INSOMNIA [None]
  - PAIN IN EXTREMITY [None]
  - HEADACHE [None]
  - REFUSAL OF TREATMENT BY PATIENT [None]
  - MENTAL DISORDER [None]
  - DIZZINESS [None]
  - SOMNOLENCE [None]
  - DRUG SCREEN POSITIVE [None]
  - FALL [None]
  - ARTHRALGIA [None]
  - MULTIPLE INJURIES [None]
  - CHILLS [None]
  - CHEST PAIN [None]
